FAERS Safety Report 21760377 (Version 1)
Quarter: 2022Q4

REPORT INFORMATION
  Report Type: Spontaneous
  Country: US (occurrence: US)
  Receive Date: 20221221
  Receipt Date: 20221221
  Transmission Date: 20230113
  Serious: No
  Sender: FDA-Public Use
  Company Number: US-TEVA-2022-US-2837849

PATIENT
  Age: 85 Year
  Sex: Female

DRUGS (1)
  1. FEXOFENADINE [Suspect]
     Active Substance: FEXOFENADINE HYDROCHLORIDE
     Indication: Nasopharyngitis
     Dosage: 60 MG 425
     Route: 048
     Dates: start: 20221208, end: 20221208

REACTIONS (3)
  - Drug ineffective [Unknown]
  - Product administered to patient of inappropriate age [Unknown]
  - Expired product administered [Unknown]

NARRATIVE: CASE EVENT DATE: 20221208
